FAERS Safety Report 24218117 (Version 1)
Quarter: 2024Q3

REPORT INFORMATION
  Report Type: Spontaneous
  Country: CN (occurrence: CN)
  Receive Date: 20240816
  Receipt Date: 20240816
  Transmission Date: 20241017
  Serious: Yes (Other)
  Sender: BIOVITRUM
  Company Number: CN-BIOVITRUM-2024-CN-010754

PATIENT
  Age: 55 Year
  Sex: Female
  Weight: 86 kg

DRUGS (1)
  1. AVATROMBOPAG MALEATE [Suspect]
     Active Substance: AVATROMBOPAG MALEATE
     Indication: Pancytopenia
     Dates: start: 20240506, end: 20240805

REACTIONS (4)
  - Gingival atrophy [Unknown]
  - Dizziness [Unknown]
  - Headache [Unknown]
  - Liver injury [Unknown]

NARRATIVE: CASE EVENT DATE: 20240805
